FAERS Safety Report 4514217-9 (Version None)
Quarter: 2004Q4

REPORT INFORMATION
  Report Type: 
  Country: None (occurrence: None)
  Receive Date: 20041124
  Receipt Date: 20041109
  Transmission Date: 20050328
  Serious: Yes (Other)
  Sender: FDA-Public Use
  Company Number: 210570

PATIENT
  Age: 76 Year
  Sex: Male
  Weight: 84 kg

DRUGS (6)
  1. HERCEPTIN [Suspect]
     Indication: BLADDER CANCER
     Dosage: SEE IMAGE
     Route: 042
     Dates: start: 20041019, end: 20041019
  2. HERCEPTIN [Suspect]
     Indication: BLADDER CANCER
     Dosage: SEE IMAGE
     Route: 042
     Dates: start: 20041026
  3. CISPLATIN [Suspect]
     Dosage: 140 MG, INTRAVENOUS
     Route: 042
     Dates: start: 20041019
  4. GEMCITABINE (GEMCITABINE HYDROCHLORIDE) [Suspect]
     Dosage: 2500 MG, INTRAVENOUS
     Route: 042
     Dates: start: 20041019
  5. PULMICORT SPRAY (BUDESONIDE) [Concomitant]
  6. BERODUAL (FENOTEROL, IPRATROPIUM BROMIDE) [Concomitant]

REACTIONS (1)
  - URINARY TRACT OBSTRUCTION [None]
